FAERS Safety Report 9646902 (Version 1)
Quarter: 2013Q4

REPORT INFORMATION
  Report Type: Spontaneous
  Country: US (occurrence: US)
  Receive Date: 20131027
  Receipt Date: 20131027
  Transmission Date: 20140711
  Serious: No
  Sender: FDA-Public Use
  Company Number: US-PURDUE-USA-2013-0102025

PATIENT
  Age: 35 Year
  Sex: Female

DRUGS (2)
  1. OXYCONTIN (NDA 22-272) [Suspect]
     Indication: PAIN
     Dosage: 10 MG, BID
     Route: 048
     Dates: start: 20130502
  2. LORTAB                             /00607101/ [Concomitant]
     Indication: PAIN
     Dosage: 10 MG, EVERY 4 TO 6 HOURS
     Route: 048

REACTIONS (1)
  - Drug ineffective [Not Recovered/Not Resolved]
